FAERS Safety Report 24035769 (Version 2)
Quarter: 2024Q4

REPORT INFORMATION
  Report Type: Report from Study
  Country: CA (occurrence: CA)
  Receive Date: 20240701
  Receipt Date: 20241009
  Transmission Date: 20250115
  Serious: Yes (Hospitalization)
  Sender: BAYER
  Company Number: CA-BAYER-2024A094253

PATIENT
  Age: 51 Year
  Sex: Female

DRUGS (2)
  1. STIVARGA [Suspect]
     Active Substance: REGORAFENIB MONOHYDRATE
     Indication: Colorectal cancer
     Dosage: UNK
     Route: 048
     Dates: start: 20240513, end: 20240624
  2. STIVARGA [Suspect]
     Active Substance: REGORAFENIB MONOHYDRATE
     Indication: Colorectal cancer
     Dosage: 120 MG, QD
     Route: 048
     Dates: start: 202407

REACTIONS (2)
  - Pulmonary pain [Unknown]
  - Dyspnoea [Unknown]
